FAERS Safety Report 9825881 (Version 1)
Quarter: 2013Q4

REPORT INFORMATION
  Report Type: Spontaneous
  Country: US (occurrence: None)
  Receive Date: 20131104
  Receipt Date: 20131104
  Transmission Date: 20140711
  Serious: Yes (Other)
  Sender: FDA-Public Use
  Company Number: 1000046972

PATIENT
  Age: 62 Year
  Sex: Female

DRUGS (4)
  1. DALIRESP [Suspect]
     Indication: CHRONIC OBSTRUCTIVE PULMONARY DISEASE
     Route: 048
     Dates: start: 20130708
  2. TOPAMAX (TOPIRAMATE) (TOPIRAMATE) [Concomitant]
  3. ZOLPIDEM (ZOLPIDEM)(ZOLPIDEM) [Concomitant]
  4. LISINOPRIL (LISINOPRIL) (LISINOPRIL) [Concomitant]

REACTIONS (6)
  - Headache [None]
  - Influenza like illness [None]
  - Dizziness [None]
  - Decreased appetite [None]
  - Nausea [None]
  - Weight decreased [None]
